FAERS Safety Report 8773995 (Version 2)
Quarter: 2012Q4

REPORT INFORMATION
  Report Type: Report from Study
  Country: US (occurrence: US)
  Receive Date: 20120908
  Receipt Date: 20120924
  Transmission Date: 20130627
  Serious: Yes (Other)
  Sender: FDA-Public Use
  Company Number: US-ABBOTT-12P-163-0974853-00

PATIENT
  Age: 63 Year
  Sex: Female

DRUGS (6)
  1. HUMIRA 40 MG/0.8 ML PEN [Suspect]
     Indication: RHEUMATOID ARTHRITIS
     Dates: start: 2003, end: 201106
  2. HUMIRA 40 MG/0.8 ML PEN [Suspect]
     Dates: start: 201112
  3. METOPROLOL [Concomitant]
     Indication: PRODUCT USED FOR UNKNOWN INDICATION
  4. DIOVAN [Concomitant]
     Indication: PRODUCT USED FOR UNKNOWN INDICATION
     Dosage: 80/12.5 mg daily
  5. SYNTHROID [Concomitant]
     Indication: PRODUCT USED FOR UNKNOWN INDICATION
     Dosage: Daily
  6. PREDNISONE [Concomitant]
     Indication: PRODUCT USED FOR UNKNOWN INDICATION

REACTIONS (13)
  - Bunion [Recovered/Resolved]
  - Knee arthroplasty [Recovered/Resolved]
  - Spinal laminectomy [Recovered/Resolved]
  - Carpal tunnel syndrome [Recovered/Resolved]
  - Bunion [Recovered/Resolved]
  - Knee arthroplasty [Recovered/Resolved]
  - Intracranial aneurysm [Recovered/Resolved]
  - Cataract operation [Recovered/Resolved]
  - Drug ineffective [Unknown]
  - Osteoporosis [Unknown]
  - Device malfunction [Unknown]
  - Injection site vesicles [Recovered/Resolved]
  - Incorrect dose administered [Unknown]
